FAERS Safety Report 5196817-9 (Version None)
Quarter: 2007Q1

REPORT INFORMATION
  Report Type: 
  Country: None (occurrence: None)
  Receive Date: 20070103
  Receipt Date: 20061227
  Transmission Date: 20070707
  Serious: Yes (Death, Other)
  Sender: FDA-Public Use
  Company Number: CN-JNJFOC-20061105499

PATIENT
  Age: 73 Year
  Sex: Female

DRUGS (3)
  1. FENTANYL TRANSDERMAL SYSTEM [Suspect]
     Route: 062
  2. FENTANYL TRANSDERMAL SYSTEM [Suspect]
     Route: 062
  3. FENTANYL TRANSDERMAL SYSTEM [Suspect]
     Indication: METASTATIC PAIN
     Route: 062

REACTIONS (4)
  - DELIRIUM [None]
  - INCORRECT DRUG ADMINISTRATION DURATION [None]
  - LETHARGY [None]
  - NEOPLASM MALIGNANT [None]
